FAERS Safety Report 4286179-3 (Version None)
Quarter: 2004Q1

REPORT INFORMATION
  Report Type: 
  Country: None (occurrence: None)
  Receive Date: 20040205
  Receipt Date: 20040127
  Transmission Date: 20041129
  Serious: Yes (Other)
  Sender: FDA-Public Use
  Company Number: PHEH2004US01335

PATIENT
  Age: 50 Year
  Sex: Male

DRUGS (2)
  1. CLOZARIL [Suspect]
     Dosage: 450 MG, QD
     Route: 048
  2. DEPAKOTE [Concomitant]

REACTIONS (4)
  - LYMPHOMA [None]
  - NEUTROPENIA [None]
  - OSTEOMYELITIS [None]
  - RENAL FAILURE [None]
